FAERS Safety Report 14038222 (Version 1)
Quarter: 2017Q4

REPORT INFORMATION
  Report Type: Spontaneous
  Country: US (occurrence: US)
  Receive Date: 20171004
  Receipt Date: 20171004
  Transmission Date: 20180321
  Serious: No
  Sender: FDA-Public Use
  Company Number: US-GALDERMA-US16006815

PATIENT
  Age: 67 Year
  Sex: Female

DRUGS (5)
  1. ZANTAC (RANITIDINE) 300 MG [Concomitant]
     Indication: PRODUCT USED FOR UNKNOWN INDICATION
     Route: 048
     Dates: start: 2010
  2. CETAPHIL DAILY FACIAL SKIN CLEANSER [Concomitant]
     Indication: THERAPEUTIC SKIN CARE TOPICAL
     Route: 061
  3. MIRVASO [Suspect]
     Active Substance: BRIMONIDINE TARTRATE
     Indication: ROSACEA
     Dosage: 0.33%
     Route: 061
     Dates: start: 20161002, end: 20161004
  4. ELAVIL 10 MG [Concomitant]
     Indication: PRODUCT USED FOR UNKNOWN INDICATION
     Dosage: 10 MG
     Route: 048
     Dates: start: 2008
  5. AVEENO [Concomitant]
     Active Substance: DIMETHICONE\HOMOSALATE\OCTINOXATE\OCTISALATE\TITANIUM DIOXIDE
     Indication: PRODUCT USED FOR UNKNOWN INDICATION
     Route: 061

REACTIONS (6)
  - Rash papular [Recovered/Resolved]
  - Skin burning sensation [Recovered/Resolved]
  - Dermatitis [Recovered/Resolved]
  - Rash pruritic [Recovered/Resolved]
  - Erythema [Recovered/Resolved]
  - Rosacea [Recovered/Resolved]

NARRATIVE: CASE EVENT DATE: 20161002
